FAERS Safety Report 7914239-1 (Version None)
Quarter: 2011Q4

REPORT INFORMATION
  Report Type: 
  Country: None (occurrence: None)
  Receive Date: 20111110
  Receipt Date: 20111102
  Transmission Date: 20120403
  Serious: Yes (Hospitalization, Other)
  Sender: FDA-Public Use
  Company Number: 2011SP019411

PATIENT
  Age: 34 Year
  Sex: Female
  Weight: 89.8122 kg

DRUGS (12)
  1. NUVARING [Suspect]
  2. TOPAMAX [Concomitant]
  3. EFFEXOR [Concomitant]
  4. ZYRTEC [Concomitant]
  5. NUVARING [Suspect]
     Indication: CONTRACEPTION
     Dates: start: 20050801
  6. NUVARING [Suspect]
     Indication: MENORRHAGIA
     Dates: start: 20050801
  7. NUVARING [Suspect]
     Indication: ENDOMETRIOSIS
     Dates: start: 20050801
  8. NUVARING [Suspect]
     Indication: CONTRACEPTION
     Dates: start: 20090201, end: 20090515
  9. NUVARING [Suspect]
     Indication: MENORRHAGIA
     Dates: start: 20090201, end: 20090515
  10. NUVARING [Suspect]
     Indication: ENDOMETRIOSIS
     Dates: start: 20090201, end: 20090515
  11. TRICOR [Concomitant]
  12. ZOMIG [Concomitant]

REACTIONS (44)
  - ASTHENIA [None]
  - TRICUSPID VALVE INCOMPETENCE [None]
  - FATIGUE [None]
  - DEPRESSION [None]
  - PELVIC PAIN [None]
  - IRON DEFICIENCY [None]
  - MALAISE [None]
  - UTERINE CYST [None]
  - ANXIETY [None]
  - ABDOMINAL DISCOMFORT [None]
  - MIGRAINE [None]
  - TACHYCARDIA [None]
  - VITAMIN B12 DEFICIENCY [None]
  - CYST RUPTURE [None]
  - NIGHTMARE [None]
  - INSOMNIA [None]
  - RENAL DISORDER [None]
  - ACUTE CORONARY SYNDROME [None]
  - MITRAL VALVE INCOMPETENCE [None]
  - SINUSITIS [None]
  - ACUTE MYOCARDIAL INFARCTION [None]
  - HYPERSOMNIA [None]
  - ENDOMETRIOSIS [None]
  - ADENOMYOSIS [None]
  - INFLUENZA LIKE ILLNESS [None]
  - HIATUS HERNIA [None]
  - DEEP VEIN THROMBOSIS [None]
  - MUSCLE SPASMS [None]
  - HEART RATE INCREASED [None]
  - PYREXIA [None]
  - LOSS OF EMPLOYMENT [None]
  - DIASTOLIC DYSFUNCTION [None]
  - COSTOCHONDRITIS [None]
  - BRONCHITIS [None]
  - BLOOD PRESSURE INCREASED [None]
  - CORONARY ARTERY DISEASE [None]
  - PULMONARY EMBOLISM [None]
  - HEART RATE IRREGULAR [None]
  - ADNEXA UTERI PAIN [None]
  - UPPER RESPIRATORY TRACT INFECTION [None]
  - GASTROOESOPHAGEAL REFLUX DISEASE [None]
  - PLEURISY [None]
  - RENAL FAILURE [None]
  - OVARIAN CYST [None]
